FAERS Safety Report 17099017 (Version 4)
Quarter: 2020Q3

REPORT INFORMATION
  Report Type: Spontaneous
  Country: US (occurrence: US)
  Receive Date: 20191202
  Receipt Date: 20200724
  Transmission Date: 20201102
  Serious: No
  Sender: FDA-Public Use
  Company Number: US-PFIZER INC-2019514221

PATIENT
  Age: 65 Year
  Sex: Female

DRUGS (1)
  1. XELJANZ [Suspect]
     Active Substance: TOFACITINIB CITRATE
     Dosage: 5 MG, UNK
     Dates: start: 201910

REACTIONS (5)
  - Inflammation [Unknown]
  - Cough [Unknown]
  - Dysphagia [Unknown]
  - Pain [Not Recovered/Not Resolved]
  - Gait disturbance [Unknown]
